FAERS Safety Report 12104594 (Version 1)
Quarter: 2016Q1

REPORT INFORMATION
  Report Type: Spontaneous
  Country: IT (occurrence: IT)
  Receive Date: 20160223
  Receipt Date: 20160223
  Transmission Date: 20160526
  Serious: Yes (Hospitalization)
  Sender: FDA-Public Use
  Company Number: IT-TEVA-635801ACC

PATIENT
  Age: 69 Year
  Sex: Female

DRUGS (3)
  1. TICHE [Concomitant]
     Indication: HYPOTHYROIDISM
     Dosage: 88 UG
     Route: 048
  2. OXALIPLATINO ACCORD - ACCORD HEALTHCARE LIMITED [Suspect]
     Active Substance: OXALIPLATIN
     Indication: COLON CANCER
     Dosage: 85 MG CYCLICAL
     Route: 042
     Dates: start: 20151229, end: 20151229
  3. FLUOROURACIL. [Suspect]
     Active Substance: FLUOROURACIL
     Indication: COLON CANCER
     Dosage: 1200 MG CYCLICAL
     Route: 042
     Dates: start: 20151229, end: 20151230

REACTIONS (4)
  - Blood potassium decreased [Recovering/Resolving]
  - Diarrhoea [Recovering/Resolving]
  - Vomiting [Recovering/Resolving]
  - Gastrointestinal inflammation [Recovering/Resolving]

NARRATIVE: CASE EVENT DATE: 20160120
